FAERS Safety Report 22090115 (Version 1)
Quarter: 2023Q1

REPORT INFORMATION
  Report Type: Spontaneous
  Country: US (occurrence: US)
  Receive Date: 20230313
  Receipt Date: 20230313
  Transmission Date: 20230417
  Serious: Yes (Other)
  Sender: FDA-Public Use
  Company Number: US-NEUROCRINE BIOSCIENCES INC.-2023NBI01756

PATIENT

DRUGS (8)
  1. INGREZZA [Suspect]
     Active Substance: VALBENAZINE
     Indication: Tardive dyskinesia
     Dosage: 40 MILLIGRAM, QD
     Route: 065
     Dates: start: 20200203, end: 202302
  2. ABILIFY [Concomitant]
     Active Substance: ARIPIPRAZOLE
  3. VALIUM [Concomitant]
     Active Substance: DIAZEPAM
  4. LAMICTAL [Concomitant]
     Active Substance: LAMOTRIGINE
  5. HYDROXYZINE [Concomitant]
     Active Substance: HYDROXYZINE HYDROCHLORIDE
  6. BUSPIRONE [Concomitant]
     Active Substance: BUSPIRONE HYDROCHLORIDE
  7. VRAYLAR [Concomitant]
     Active Substance: CARIPRAZINE
  8. PROZAC [Concomitant]
     Active Substance: FLUOXETINE HYDROCHLORIDE

REACTIONS (4)
  - Suicidal ideation [Unknown]
  - Tardive dyskinesia [Not Recovered/Not Resolved]
  - Therapeutic product effect decreased [Unknown]
  - Stress [Unknown]

NARRATIVE: CASE EVENT DATE: 20230101
